FAERS Safety Report 16301256 (Version 1)
Quarter: 2019Q2

REPORT INFORMATION
  Report Type: Spontaneous
  Country: US (occurrence: US)
  Receive Date: 20190510
  Receipt Date: 20190510
  Transmission Date: 20190711
  Serious: Yes (Hospitalization, Other)
  Sender: FDA-Public Use
  Company Number: US-APOTEX-2019AP013679

PATIENT
  Age: 59 Year
  Sex: Female

DRUGS (2)
  1. MYCOPHENOLATE [Suspect]
     Active Substance: MYCOPHENOLIC ACID
     Indication: SYSTEMIC SCLERODERMA
     Dosage: UNK
     Route: 065
  2. MYCOPHENOLATE [Suspect]
     Active Substance: MYCOPHENOLIC ACID
     Indication: SJOGREN^S SYNDROME

REACTIONS (5)
  - Anaemia [Not Recovered/Not Resolved]
  - Hepatic enzyme increased [Recovering/Resolving]
  - Leukopenia [Recovering/Resolving]
  - Pericardial effusion [Recovering/Resolving]
  - Cytomegalovirus viraemia [Recovering/Resolving]
